FAERS Safety Report 24293967 (Version 1)
Quarter: 2024Q3

REPORT INFORMATION
  Report Type: Spontaneous
  Country: US (occurrence: US)
  Receive Date: 20240906
  Receipt Date: 20240906
  Transmission Date: 20241016
  Serious: No
  Sender: PHARMING GROUP
  Company Number: US-PHARMING-PHAUS2024000758

PATIENT

DRUGS (1)
  1. RUCONEST [Suspect]
     Active Substance: CONESTAT ALFA
     Indication: Hereditary angioedema
     Dosage: 2100 IU TO 4200 IU OVER 5 MINUTES TWICE A WEEK AND AS NEEDED
     Route: 058
     Dates: start: 201803

REACTIONS (2)
  - Arthropod bite [Unknown]
  - Weight decreased [Unknown]
